FAERS Safety Report 5533555-4 (Version None)
Quarter: 2007Q4

REPORT INFORMATION
  Report Type: 
  Country: None (occurrence: None)
  Receive Date: 20071204
  Receipt Date: 20071129
  Transmission Date: 20080405
  Serious: Yes (Other)
  Sender: FDA-Public Use
  Company Number: DE-PFIZER INC-2007100125

PATIENT
  Sex: Female
  Weight: 56 kg

DRUGS (2)
  1. ZIPRASIDONE (IM) [Suspect]
     Indication: PSYCHOTIC DISORDER
     Route: 030
  2. TAVOR [Concomitant]

REACTIONS (1)
  - CIRCULATORY COLLAPSE [None]
